FAERS Safety Report 7053915-2 (Version None)
Quarter: 2010Q4

REPORT INFORMATION
  Report Type: 
  Country: None (occurrence: None)
  Receive Date: 20101014
  Receipt Date: 20100930
  Transmission Date: 20110411
  Serious: Yes (Other)
  Sender: FDA-Public Use
  Company Number: 1000016757

PATIENT
  Age: 58 Year
  Sex: Female
  Weight: 120 kg

DRUGS (3)
  1. ESCITALOPRAM [Suspect]
     Dosage: 5 MG (5 MG, 1 IN 1 D), ORAL
     Route: 048
  2. LAMICTAL [Concomitant]
  3. ANTIHYPERTENSIVES (ANTIHYPERTENSIVES) (ANTIHYPERTENSIVES) [Concomitant]

REACTIONS (2)
  - OEDEMA PERIPHERAL [None]
  - WEIGHT INCREASED [None]
